FAERS Safety Report 8606001-1 (Version None)
Quarter: 2012Q3

REPORT INFORMATION
  Report Type: 
  Country: None (occurrence: None)
  Receive Date: 20120820
  Receipt Date: 20120810
  Transmission Date: 20120928
  Serious: Yes (Life-Threatening, Hospitalization, Congenital Anomaly, Other)
  Sender: FDA-Public Use
  Company Number: DE-PFIZER INC-2012195140

PATIENT
  Sex: Male
  Weight: 2.405 kg

DRUGS (5)
  1. FOLIC ACID/IODINE/MINERALS NOS/PROTEIN/VITAMINS NOS [Concomitant]
     Indication: PROPHYLAXIS OF NEURAL TUBE DEFECT
     Dosage: UNK
     Dates: start: 20110829, end: 20120405
  2. LEVOTHYROXINE [Concomitant]
     Indication: HYPOTHYROIDISM
     Dosage: 50 UG, 1X/DAY
     Route: 064
     Dates: end: 20120405
  3. RAMIPRIL [Suspect]
     Indication: HYPERTENSION
     Dosage: 2.5 MG, 1X/DAY
     Route: 064
  4. RAMIPRIL [Suspect]
     Dosage: 5 MG, 1X/DAY
     Route: 064
     Dates: end: 20120405
  5. NEBIVOLOL HCL [Suspect]
     Indication: HYPERTENSION
     Dosage: 50 MG, 1X/DAY
     Route: 064
     Dates: end: 20120405

REACTIONS (7)
  - NEONATAL ANURIA [None]
  - CRANIAL SUTURES WIDENING [None]
  - EXTREMITY CONTRACTURE [None]
  - SMALL FOR DATES BABY [None]
  - RENAL FAILURE ACUTE [None]
  - MATERNAL EXPOSURE TIMING UNSPECIFIED [None]
  - RENAL APLASIA [None]
